FAERS Safety Report 12138215 (Version 1)
Quarter: 2016Q1

REPORT INFORMATION
  Report Type: Report from Study
  Country: FI (occurrence: FI)
  Receive Date: 20160302
  Receipt Date: 20160302
  Transmission Date: 20160526
  Serious: Yes (Hospitalization, Other)
  Sender: FDA-Public Use
  Company Number: FI-CELGENE-055-21880-14024387

PATIENT

DRUGS (1)
  1. REVLIMID [Suspect]
     Active Substance: LENALIDOMIDE
     Indication: PLASMA CELL MYELOMA
     Route: 048

REACTIONS (13)
  - Gastrointestinal disorder [Unknown]
  - Neutropenia [Unknown]
  - Amaurosis fugax [Unknown]
  - Hepatotoxicity [Unknown]
  - Lung adenocarcinoma [Unknown]
  - Plasma cell myeloma [Unknown]
  - Pneumonia [Recovered/Resolved]
  - Syncope [Unknown]
  - Diarrhoea [Recovered/Resolved]
  - Constipation [Recovered/Resolved]
  - Atrial fibrillation [Unknown]
  - Deep vein thrombosis [Unknown]
  - Sepsis [Unknown]
